FAERS Safety Report 9728924 (Version 2)
Quarter: 2014Q1

REPORT INFORMATION
  Report Type: Spontaneous
  Country: US (occurrence: US)
  Receive Date: 20131204
  Receipt Date: 20140113
  Transmission Date: 20141002
  Serious: Yes (Disabling, Other)
  Sender: FDA-Public Use
  Company Number: US-PFIZER INC-2013344854

PATIENT
  Age: 38 Year
  Sex: Female
  Weight: 89.8 kg

DRUGS (10)
  1. LYRICA [Suspect]
     Indication: FIBROMYALGIA
     Dosage: 75 MG, 3X/DAY
     Route: 048
     Dates: start: 201305
  2. CELEBREX [Suspect]
     Indication: OSTEOARTHRITIS
     Dosage: 100 MG, 2X/DAY
     Route: 048
     Dates: start: 20131015
  3. SAVELLA [Concomitant]
     Dosage: 50 MG, 2X/DAY
     Route: 048
  4. XANAX [Concomitant]
     Dosage: 0.25 MG, 4X/DAY
     Route: 048
  5. OXYCODONE [Concomitant]
     Dosage: 15 MG, 4X/DAY
     Route: 048
  6. ZANAFLEX [Concomitant]
     Dosage: 2 MG, THREE TIMES A DAY AS NEEDED
     Route: 048
  7. POTASSIUM [Concomitant]
     Dosage: 20 MEQ, 1X/DAY
     Route: 048
  8. THIAMINE [Concomitant]
     Dosage: 50 MG, 1X/DAY
     Route: 048
  9. IRON [Concomitant]
     Dosage: 320 MG, 1X/DAY
     Route: 048
  10. VALTREX [Concomitant]
     Dosage: UNK, 2X/DAY
     Route: 048

REACTIONS (4)
  - Drug ineffective [Not Recovered/Not Resolved]
  - Chronic fatigue syndrome [Not Recovered/Not Resolved]
  - Toxoplasmosis [Unknown]
  - Red blood cell count increased [Unknown]
